FAERS Safety Report 17174863 (Version 1)
Quarter: 2019Q4

REPORT INFORMATION
  Report Type: Spontaneous
  Country: US (occurrence: US)
  Receive Date: 20191219
  Receipt Date: 20191219
  Transmission Date: 20200122
  Serious: No
  Sender: FDA-Public Use
  Company Number: US-UCBSA-118099

PATIENT
  Age: 75 Year
  Sex: Female

DRUGS (1)
  1. CIMZIA [Suspect]
     Active Substance: CERTOLIZUMAB PEGOL
     Indication: RHEUMATOID ARTHRITIS
     Dosage: DRUG STRENGTH: 200 MG

REACTIONS (5)
  - Drug ineffective [Unknown]
  - Alopecia [Unknown]
  - Decreased appetite [Unknown]
  - Palpitations [Unknown]
  - Rash macular [Unknown]
